FAERS Safety Report 5478390-0 (Version None)
Quarter: 2007Q4

REPORT INFORMATION
  Report Type: 
  Country: None (occurrence: None)
  Receive Date: 20071005
  Receipt Date: 20070928
  Transmission Date: 20080405
  Serious: Yes (Hospitalization)
  Sender: FDA-Public Use
  Company Number: B0489660A

PATIENT
  Age: 68 Year
  Sex: Female
  Weight: 53.7 kg

DRUGS (2)
  1. LAPATINIB [Suspect]
     Indication: BREAST CANCER METASTATIC
     Dosage: 1250MG PER DAY
     Route: 048
     Dates: start: 20070913, end: 20070928
  2. CAPECITABINE [Suspect]
     Indication: BREAST CANCER METASTATIC
     Dosage: 1000MGM2 TWICE PER DAY
     Route: 048
     Dates: start: 20070913, end: 20070927

REACTIONS (3)
  - DIARRHOEA [None]
  - SYNCOPE [None]
  - VOMITING [None]
